FAERS Safety Report 7604217-4 (Version None)
Quarter: 2011Q3

REPORT INFORMATION
  Report Type: 
  Country: None (occurrence: None)
  Receive Date: 20110712
  Receipt Date: 20110630
  Transmission Date: 20111222
  Serious: Yes (Other)
  Sender: FDA-Public Use
  Company Number: CA-MERCK-0906CAN00001

PATIENT
  Age: 45 Year
  Sex: Male

DRUGS (6)
  1. PREZISTA [Concomitant]
     Route: 048
     Dates: start: 20090223, end: 20090301
  2. ISENTRESS [Suspect]
     Indication: HIV INFECTION
     Route: 048
     Dates: start: 20090223, end: 20090301
  3. RITONAVIR [Concomitant]
     Route: 048
     Dates: start: 20090223, end: 20090301
  4. INTELENCE [Concomitant]
     Route: 048
     Dates: start: 20090223, end: 20090301
  5. LAMIVUDINE [Concomitant]
     Route: 048
     Dates: start: 20090223, end: 20090301
  6. ISENTRESS [Suspect]
     Route: 048
     Dates: start: 20070601, end: 20080901

REACTIONS (4)
  - SUICIDAL IDEATION [None]
  - MOOD SWINGS [None]
  - ANXIETY [None]
  - DEPRESSION [None]
